FAERS Safety Report 5974292-1 (Version None)
Quarter: 2008Q4

REPORT INFORMATION
  Report Type: 
  Country: None (occurrence: None)
  Receive Date: 20081128
  Receipt Date: 20080421
  Transmission Date: 20090506
  Serious: Yes (Hospitalization, Other)
  Sender: FDA-Public Use
  Company Number: 2008US000810

PATIENT
  Age: 11 Year
  Sex: Female

DRUGS (8)
  1. TACROLIMUS [Suspect]
     Indication: DERMATITIS ATOPIC
     Dosage: 0.03%, TOPICAL
     Route: 061
     Dates: start: 20070212
  2. ENALAPRIL MALEATE [Concomitant]
  3. ALDACTONE [Concomitant]
  4. PREVACID [Concomitant]
  5. VITAMIN K (VITAMIN KS NOS) [Concomitant]
  6. LASIX [Concomitant]
  7. BACTRIM [Concomitant]
  8. FERROUS SULFATE TAB [Concomitant]

REACTIONS (29)
  - ACTIVATED PARTIAL THROMBOPLASTIN TIME PROLONGED [None]
  - ANAEMIA [None]
  - ARTERIOVENOUS MALFORMATION [None]
  - BLOOD ELECTROLYTES ABNORMAL [None]
  - BLOOD FIBRINOGEN DECREASED [None]
  - CANDIDIASIS [None]
  - COAGULATION FACTOR IX LEVEL DECREASED [None]
  - COAGULATION FACTOR V LEVEL DECREASED [None]
  - COAGULATION FACTOR VII LEVEL DECREASED [None]
  - COAGULATION FACTOR X LEVEL DECREASED [None]
  - COAGULOPATHY [None]
  - DIPLOPIA [None]
  - FLUID OVERLOAD [None]
  - GASTRIC HAEMORRHAGE [None]
  - GASTROINTESTINAL HAEMORRHAGE [None]
  - HAEMANGIOMA [None]
  - HAEMORRHOIDS [None]
  - HYPOTENSION [None]
  - INTRA-ABDOMINAL HAEMORRHAGE [None]
  - KIDNEY DUPLEX [None]
  - METABOLIC ACIDOSIS [None]
  - MUSCLE HAEMORRHAGE [None]
  - PANCREATITIS [None]
  - PLEURAL EFFUSION [None]
  - PNEUMONIA [None]
  - PROTHROMBIN TIME PROLONGED [None]
  - REFLUX OESOPHAGITIS [None]
  - RENAL FAILURE [None]
  - URINARY TRACT INFECTION FUNGAL [None]
